FAERS Safety Report 8816523 (Version 1)
Quarter: 2012Q4

REPORT INFORMATION
  Report Type: Spontaneous
  Country: US (occurrence: None)
  Receive Date: 20120927
  Receipt Date: 20120927
  Transmission Date: 20130627
  Serious: No
  Sender: FDA-Public Use
  Company Number: 20120593

PATIENT
  Age: 78 Year
  Sex: Female

DRUGS (1)
  1. CALCIUM GLUCONATE [Suspect]
     Indication: DRUG USE FOR UNKNOWN INDICATION
     Dosage: slow infusion of IV
     Route: 042

REACTIONS (2)
  - Hypoparathyroidism [None]
  - Hyperphosphataemia [None]
